FAERS Safety Report 9054087 (Version 2)
Quarter: 2013Q2

REPORT INFORMATION
  Report Type: Spontaneous
  Country: FR (occurrence: FR)
  Receive Date: 20130208
  Receipt Date: 20130628
  Transmission Date: 20140414
  Serious: Yes (Life-Threatening, Other)
  Sender: FDA-Public Use
  Company Number: FR-JNJFOC-20130117158

PATIENT
  Sex: Male
  Weight: 124 kg

DRUGS (4)
  1. RISPERDAL CONSTA [Suspect]
     Indication: SCHIZOPHRENIA
     Route: 030
     Dates: start: 20120620, end: 20130120
  2. RISPERDAL [Suspect]
     Indication: SCHIZOPHRENIA
     Route: 048
  3. NORSET [Concomitant]
     Route: 048
     Dates: start: 201210
  4. NOZINAN [Concomitant]
     Route: 048
     Dates: start: 2011

REACTIONS (3)
  - Suicidal ideation [Recovered/Resolved]
  - Condition aggravated [Unknown]
  - Feeling abnormal [Recovered/Resolved]
